FAERS Safety Report 14881468 (Version 1)
Quarter: 2018Q2

REPORT INFORMATION
  Report Type: Spontaneous
  Country: US (occurrence: US)
  Receive Date: 20180511
  Receipt Date: 20180511
  Transmission Date: 20180711
  Serious: Yes (Hospitalization)
  Sender: FDA-Public Use
  Company Number: US-SA-2018SA126041

PATIENT
  Age: 27 Year
  Sex: Female

DRUGS (6)
  1. PREDNISONE. [Suspect]
     Active Substance: PREDNISONE
     Indication: DRUG REACTION WITH EOSINOPHILIA AND SYSTEMIC SYMPTOMS
     Route: 048
  2. PREDNISONE. [Suspect]
     Active Substance: PREDNISONE
     Indication: DRUG REACTION WITH EOSINOPHILIA AND SYSTEMIC SYMPTOMS
     Dosage: SLOW STEROID TAPER BY 20 MG WEEKLY FOR 2 WEEKS, FOLLOWED BY 5 TO 10 MG WEEKLY OVER 2 MONTHS
     Route: 048
  3. PREDNISONE. [Suspect]
     Active Substance: PREDNISONE
     Indication: DRUG REACTION WITH EOSINOPHILIA AND SYSTEMIC SYMPTOMS
     Route: 048
  4. PREDNISONE. [Suspect]
     Active Substance: PREDNISONE
     Indication: DRUG REACTION WITH EOSINOPHILIA AND SYSTEMIC SYMPTOMS
     Route: 048
  5. MINOCYCLINE HYDROCHLORIDE. [Suspect]
     Active Substance: MINOCYCLINE HYDROCHLORIDE
     Indication: HIDRADENITIS
     Route: 065
  6. RIFAMPICIN [Suspect]
     Active Substance: RIFAMPIN
     Indication: HIDRADENITIS
     Route: 065

REACTIONS (28)
  - Drug reaction with eosinophilia and systemic symptoms [Recovering/Resolving]
  - Fatigue [Recovering/Resolving]
  - Face oedema [Recovering/Resolving]
  - Decreased appetite [Recovering/Resolving]
  - Heart rate increased [Recovering/Resolving]
  - Leukocytosis [Recovering/Resolving]
  - Prothrombin time prolonged [Recovering/Resolving]
  - Rash erythematous [Recovering/Resolving]
  - Splenic infarction [Recovering/Resolving]
  - Pyrexia [Recovering/Resolving]
  - International normalised ratio increased [Recovering/Resolving]
  - Rash maculo-papular [Recovering/Resolving]
  - Abdominal pain [Recovering/Resolving]
  - Blood lactate dehydrogenase increased [Recovering/Resolving]
  - Splenomegaly [Recovering/Resolving]
  - Alanine aminotransferase increased [Recovering/Resolving]
  - Hypertension [Recovering/Resolving]
  - Thrombocytopenia [Recovering/Resolving]
  - Eosinophilia [Recovered/Resolved]
  - Swelling face [Recovering/Resolving]
  - Rebound effect [Unknown]
  - Nausea [Recovering/Resolving]
  - Dizziness [Recovering/Resolving]
  - Haematocrit decreased [Recovering/Resolving]
  - Aspartate aminotransferase increased [Recovering/Resolving]
  - Splenic thrombosis [Recovering/Resolving]
  - Lymphadenopathy [Recovering/Resolving]
  - Anaemia [Recovering/Resolving]
